FAERS Safety Report 12966696 (Version 2)
Quarter: 2016Q4

REPORT INFORMATION
  Report Type: Spontaneous
  Country: DE (occurrence: DE)
  Receive Date: 20161122
  Receipt Date: 20161208
  Transmission Date: 20170207
  Serious: Yes (Hospitalization, Other)
  Sender: FDA-Public Use
  Company Number: DE-AMGEN-DEUSP2016163842

PATIENT
  Sex: Female

DRUGS (1)
  1. PROLIA [Suspect]
     Active Substance: DENOSUMAB
     Indication: OSTEOPOROSIS
     Dosage: 60 MG, Q6MO
     Route: 058
     Dates: start: 20160405, end: 20161108

REACTIONS (3)
  - Drug ineffective [Unknown]
  - Lumbar vertebral fracture [Unknown]
  - Fractured sacrum [Recovering/Resolving]

NARRATIVE: CASE EVENT DATE: 20161017
